FAERS Safety Report 7088697-1 (Version None)
Quarter: 2010Q4

REPORT INFORMATION
  Report Type: 
  Country: None (occurrence: None)
  Receive Date: 20101108
  Receipt Date: 20101027
  Transmission Date: 20110411
  Serious: Yes (Hospitalization, Other)
  Sender: FDA-Public Use
  Company Number: DE-BAYER-201039880GPV

PATIENT
  Age: 61 Year
  Sex: Male

DRUGS (3)
  1. NEXAVAR [Suspect]
     Indication: HEPATIC NEOPLASM MALIGNANT
     Dosage: TOTAL DAILY DOSE: 400 MG
     Route: 048
     Dates: start: 20100809, end: 20100813
  2. 4SC-201 [Suspect]
     Indication: HEPATIC NEOPLASM MALIGNANT
     Dosage: TOTAL DAILY DOSE: 600 MG
     Route: 048
     Dates: start: 20100809, end: 20100813
  3. KALINOR [Concomitant]
     Indication: BLOOD POTASSIUM DECREASED
     Route: 048
     Dates: start: 20100813

REACTIONS (3)
  - BLOOD POTASSIUM DECREASED [None]
  - CONDUCTION DISORDER [None]
  - ELECTROCARDIOGRAM QT PROLONGED [None]
